FAERS Safety Report 10758431 (Version 2)
Quarter: 2015Q1

REPORT INFORMATION
  Report Type: Report from Study
  Country: US (occurrence: US)
  Receive Date: 20150203
  Receipt Date: 20150220
  Transmission Date: 20150721
  Serious: Yes (Other)
  Sender: FDA-Public Use
  Company Number: US-ACTELION-A-US2015-112099

PATIENT
  Age: 66 Year
  Sex: Female

DRUGS (3)
  1. ADCIRCA [Concomitant]
     Active Substance: TADALAFIL
  2. WARFARIN [Concomitant]
     Active Substance: WARFARIN
  3. VELETRI [Suspect]
     Active Substance: EPOPROSTENOL
     Indication: COR PULMONALE CHRONIC
     Dosage: 22 NG/KG, PER MIN
     Route: 041
     Dates: start: 20100923

REACTIONS (8)
  - Pain in jaw [Recovering/Resolving]
  - Rash [Recovering/Resolving]
  - Chills [Unknown]
  - Device related infection [Recovering/Resolving]
  - Erythema [Recovering/Resolving]
  - Upper limb fracture [Unknown]
  - Dyspnoea [Unknown]
  - Fall [Unknown]
